FAERS Safety Report 24077544 (Version 1)
Quarter: 2024Q3

REPORT INFORMATION
  Report Type: Spontaneous
  Country: US (occurrence: US)
  Receive Date: 20240711
  Receipt Date: 20240711
  Transmission Date: 20241016
  Serious: No
  Sender: PIERRE FABRE MEDICAMENT
  Company Number: US-PFM-2023-03794

PATIENT
  Age: 0 Year
  Sex: Female

DRUGS (2)
  1. HEMANGEOL [Suspect]
     Active Substance: PROPRANOLOL HYDROCHLORIDE
     Indication: Haemangioma
     Dosage: 2 ML, BID (2/DAY)
     Route: 048
     Dates: start: 20230522
  2. SIMETHICONE (DIMETHICONE) [Concomitant]
     Active Substance: DIMETHICONE
     Indication: Product used for unknown indication
     Dosage: 20MG/0.3 DROPS, 15 ML
     Route: 065

REACTIONS (2)
  - Nausea [Unknown]
  - Infantile spitting up [Unknown]

NARRATIVE: CASE EVENT DATE: 20230601
